FAERS Safety Report 20777796 (Version 1)
Quarter: 2022Q2

REPORT INFORMATION
  Report Type: Spontaneous
  Country: US (occurrence: US)
  Receive Date: 20220503
  Receipt Date: 20220503
  Transmission Date: 20220721
  Serious: No
  Sender: FDA-Public Use
  Company Number: US-GLENMARK PHARMACEUTICALS-2022GMK069978

PATIENT

DRUGS (3)
  1. MUPIROCIN [Suspect]
     Active Substance: MUPIROCIN
     Indication: Hypersensitivity
     Dosage: UNK, BID
     Route: 061
     Dates: start: 20211119
  2. TRIAMCINOLONE ACETONIDE [Concomitant]
     Active Substance: TRIAMCINOLONE ACETONIDE
     Indication: Hypersensitivity
     Dosage: UNK
     Route: 061
  3. AMMONIUM LACTATE [Concomitant]
     Active Substance: AMMONIUM LACTATE
     Indication: Hypersensitivity
     Dosage: UNK
     Route: 061

REACTIONS (5)
  - Diarrhoea [Unknown]
  - Application site discolouration [Unknown]
  - Intercepted product administration error [Unknown]
  - Product use issue [Unknown]
  - Product use in unapproved indication [Unknown]
